FAERS Safety Report 4289196-2 (Version None)
Quarter: 2004Q1

REPORT INFORMATION
  Report Type: 
  Country: None (occurrence: None)
  Receive Date: 20040209
  Receipt Date: 20040209
  Transmission Date: 20041129
  Serious: Yes (Other)
  Sender: FDA-Public Use
  Company Number: None

PATIENT
  Age: 90 Year
  Sex: Female
  Weight: 89 kg

DRUGS (2)
  1. CEFEPIME [Suspect]
     Indication: FEBRILE NEUTROPENIA
     Dosage: SEE IMAGE
     Route: 042
     Dates: start: 20040129, end: 20040129
  2. CEFEPIME [Suspect]
     Indication: FEBRILE NEUTROPENIA
     Dosage: SEE IMAGE
     Route: 042
     Dates: start: 20040130, end: 20040202

REACTIONS (2)
  - CONFUSIONAL STATE [None]
  - DISORIENTATION [None]
